FAERS Safety Report 7535276-5 (Version None)
Quarter: 2011Q2

REPORT INFORMATION
  Report Type: 
  Country: None (occurrence: None)
  Receive Date: 20110609
  Receipt Date: 20080131
  Transmission Date: 20111010
  Serious: Yes (Death)
  Sender: FDA-Public Use
  Company Number: PHMT2007CA02351

PATIENT
  Sex: Male

DRUGS (4)
  1. CLOMIPRAMINE HYDROCHLORIDE [Concomitant]
     Dosage: 150 MG, UNK
  2. INSULIN [Concomitant]
  3. CLOZAPINE [Suspect]
     Indication: SCHIZOPHRENIA
     Dosage: 600 MG, QD
     Route: 048
     Dates: start: 19930301
  4. CLONAZEPAM [Concomitant]
     Dosage: 1 MG, UNK

REACTIONS (3)
  - LOSS OF CONSCIOUSNESS [None]
  - MYOCARDIAL INFARCTION [None]
  - DIABETIC COMA [None]
